FAERS Safety Report 8388375-2 (Version None)
Quarter: 2012Q2

REPORT INFORMATION
  Report Type: 
  Country: None (occurrence: None)
  Receive Date: 20120525
  Receipt Date: 20120518
  Transmission Date: 20120825
  Serious: Yes (Hospitalization, Other)
  Sender: FDA-Public Use
  Company Number: US-UCBSA-057775

PATIENT
  Age: 71 Year
  Sex: Female
  Weight: 66.224 kg

DRUGS (5)
  1. KEPPRA [Suspect]
     Indication: GRAND MAL CONVULSION
     Dosage: FIRST DOSE LONGER THAN 2 YEARS ,
     Route: 048
  2. SYNTHROID [Concomitant]
     Indication: HYPOTHYROIDISM
     Dosage: STARTED DATE: PROBABLY 8 YEARS
     Route: 048
  3. PLAVIX [Concomitant]
     Indication: THROMBOSIS
     Route: 048
     Dates: start: 20100101
  4. LOSARTAN POTASSIUM [Concomitant]
     Indication: HYPERTENSION
     Dosage: START DATE: MAY BE ABOUT A MONTH AND HALF AGO
     Route: 048
  5. CRESTOR [Concomitant]
     Indication: BLOOD CHOLESTEROL
     Dosage: START DATE: 2 YEARS NOW
     Route: 048

REACTIONS (5)
  - PYREXIA [None]
  - CONFUSIONAL STATE [None]
  - URINARY TRACT INFECTION [None]
  - WEIGHT DECREASED [None]
  - VOMITING [None]
